FAERS Safety Report 22032648 (Version 1)
Quarter: 2023Q1

REPORT INFORMATION
  Report Type: Spontaneous
  Country: ES (occurrence: ES)
  Receive Date: 20230224
  Receipt Date: 20230224
  Transmission Date: 20230418
  Serious: Yes (Other)
  Sender: FDA-Public Use
  Company Number: None

PATIENT
  Age: 52 Year
  Sex: Male

DRUGS (3)
  1. FLUOROURACIL [Suspect]
     Active Substance: FLUOROURACIL
     Indication: Colorectal cancer
     Dosage: 476 MILLIGRAMS (340MG/M2) REDUCED TO 85% OF THE TOTAL
     Dates: start: 20221031
  2. IRINOTECAN HYDROCHLORIDE [Suspect]
     Active Substance: IRINOTECAN HYDROCHLORIDE
     Indication: Colorectal cancer
     Dosage: 252 MILLIGRAMS (180MG/M2) REDUCED ON 31-OCT-2022 TO 85% OF THE TOTAL 214.2?MILLIGRAMS (153 MG/M2)
     Dates: start: 20221017, end: 20230113
  3. VECTIBIX [Suspect]
     Active Substance: PANITUMUMAB
     Indication: Colorectal cancer
     Dosage: STRENGTH: 20 MG/ML, 288 MILLIGRAMS (6MG/KG)
     Dates: start: 20221017, end: 20230113

REACTIONS (3)
  - Skin fissures [Not Recovered/Not Resolved]
  - Palmar-plantar erythrodysaesthesia syndrome [Not Recovered/Not Resolved]
  - Dermatitis acneiform [Not Recovered/Not Resolved]

NARRATIVE: CASE EVENT DATE: 20221101
